FAERS Safety Report 25834576 (Version 2)
Quarter: 2025Q4

REPORT INFORMATION
  Report Type: Report from Study
  Country: US (occurrence: US)
  Receive Date: 20250923
  Receipt Date: 20251222
  Transmission Date: 20260119
  Serious: No
  Sender: ACADIA PHARMACEUTICALS
  Company Number: US-ACADIA PHARMACEUTICALS INC.-ACA-2025-PIM-010470

PATIENT
  Age: 74 Year
  Sex: Female

DRUGS (13)
  1. NUPLAZID [Suspect]
     Active Substance: PIMAVANSERIN TARTRATE
     Indication: Parkinson^s disease psychosis
     Dosage: 34 MILLIGRAM, QD
     Route: 048
     Dates: start: 20241231, end: 20251212
  2. OLANZAPINE [Concomitant]
     Active Substance: OLANZAPINE
  3. MEMANTINE [Concomitant]
     Active Substance: MEMANTINE
  4. LEXAPRO [Concomitant]
     Active Substance: ESCITALOPRAM OXALATE
  5. SELEGILINE [Concomitant]
     Active Substance: SELEGILINE
  6. EXELON [Concomitant]
     Active Substance: RIVASTIGMINE TARTRATE
  7. DONEPEZIL [Concomitant]
     Active Substance: DONEPEZIL
  8. KEPPRA [Concomitant]
     Active Substance: LEVETIRACETAM
  9. METFORMIN [Concomitant]
     Active Substance: METFORMIN HYDROCHLORIDE
  10. LEVOTHYROXINE [Concomitant]
     Active Substance: LEVOTHYROXINE
  11. QUETIAPINE [Concomitant]
     Active Substance: QUETIAPINE
  12. ESCITALOPRAM [Concomitant]
     Active Substance: ESCITALOPRAM OXALATE
  13. LEVETIRACETAM [Concomitant]
     Active Substance: LEVETIRACETAM

REACTIONS (2)
  - Chest pain [Unknown]
  - Dehydration [Unknown]

NARRATIVE: CASE EVENT DATE: 20250831
